FAERS Safety Report 4546065-8 (Version None)
Quarter: 2005Q1

REPORT INFORMATION
  Report Type: 
  Country: None (occurrence: None)
  Receive Date: 20050103
  Receipt Date: 20041222
  Transmission Date: 20050727
  Serious: Yes (Other)
  Sender: FDA-Public Use
  Company Number: 2004117416

PATIENT
  Age: 66 Year
  Sex: Female
  Weight: 77.1115 kg

DRUGS (1)
  1. BENADRYL [Suspect]
     Indication: RASH PRURITIC
     Dosage: 1 PILL, ONCE, ORAL
     Route: 048
     Dates: start: 20041219, end: 20041219

REACTIONS (7)
  - ASTHENIA [None]
  - CHILLS [None]
  - CYSTITIS [None]
  - HEADACHE [None]
  - HYPERSOMNIA [None]
  - LOCALISED INFECTION [None]
  - NAUSEA [None]
